FAERS Safety Report 23945622 (Version 1)
Quarter: 2024Q2

REPORT INFORMATION
  Report Type: Spontaneous
  Country: US (occurrence: None)
  Receive Date: 20240605
  Receipt Date: 20240605
  Transmission Date: 20240716
  Serious: Yes (Hospitalization)
  Sender: FDA-Public Use
  Company Number: None

PATIENT
  Age: 69 Year
  Sex: Female
  Weight: 82.04 kg

DRUGS (1)
  1. TECVAYLI [Suspect]
     Active Substance: TECLISTAMAB-CQYV
     Indication: Plasma cell myeloma
     Dosage: OTHER FREQUENCY : ONCE;?
     Route: 058
     Dates: start: 20240521, end: 20240530

REACTIONS (7)
  - Asthenia [None]
  - Dizziness [None]
  - Hypotension [None]
  - White blood cell count decreased [None]
  - Troponin increased [None]
  - C-reactive protein increased [None]
  - Therapy change [None]

NARRATIVE: CASE EVENT DATE: 20240530
